FAERS Safety Report 21510825 (Version 1)
Quarter: 2022Q4

REPORT INFORMATION
  Report Type: Spontaneous
  Country: US (occurrence: US)
  Receive Date: 20221026
  Receipt Date: 20221026
  Transmission Date: 20230113
  Serious: Yes (Hospitalization)
  Sender: FDA-Public Use
  Company Number: US-PURDUE PHARMA-USA-2022-0295182

PATIENT
  Age: 77 Year
  Sex: Male
  Weight: 77.4 kg

DRUGS (36)
  1. OXYCODONE HYDROCHLORIDE [Suspect]
     Active Substance: OXYCODONE HYDROCHLORIDE
     Indication: Spinal stenosis
     Dosage: 5 MILLIGRAM, PRN
     Route: 048
     Dates: start: 20190709
  2. TAFAMIDIS [Suspect]
     Active Substance: TAFAMIDIS
     Indication: Cardiac amyloidosis
     Dosage: 61 MILLIGRAM, DAILY
     Route: 048
     Dates: start: 20190523
  3. UBIQUINOL [Concomitant]
     Active Substance: UBIQUINOL
     Indication: Product used for unknown indication
     Dosage: UNK
     Route: 065
     Dates: start: 2015
  4. DEMADEX [Concomitant]
     Active Substance: TORSEMIDE
     Indication: Cardiac failure congestive
     Dosage: UNK
     Route: 065
     Dates: start: 20180808
  5. ZOCOR [Concomitant]
     Active Substance: SIMVASTATIN
     Indication: Hyperlipidaemia
     Dosage: UNK
     Route: 065
     Dates: start: 2015
  6. TIKOSYN [Concomitant]
     Active Substance: DOFETILIDE
     Indication: Atrial fibrillation
     Dosage: UNK
     Route: 065
     Dates: start: 20180808
  7. TYLENOL [Concomitant]
     Active Substance: ACETAMINOPHEN
     Indication: Spinal stenosis
     Dosage: UNK
     Route: 065
     Dates: start: 20190708
  8. SENNA LEAF [Concomitant]
     Active Substance: SENNA LEAF
     Indication: Constipation
     Dosage: UNK
     Route: 065
     Dates: start: 20190708
  9. LIDODERM [Concomitant]
     Active Substance: LIDOCAINE
     Indication: Spinal stenosis
     Dosage: UNK
     Route: 065
     Dates: start: 20190712
  10. GABAPENTIN [Concomitant]
     Active Substance: GABAPENTIN
     Indication: Spinal stenosis
     Dosage: UNK
     Route: 065
     Dates: start: 20190409
  11. COLACE [Concomitant]
     Active Substance: DOCUSATE SODIUM
     Indication: Constipation
     Dosage: UNK
     Route: 065
     Dates: start: 201810, end: 20190707
  12. COLACE [Concomitant]
     Active Substance: DOCUSATE SODIUM
     Dosage: UNK
     Route: 065
     Dates: start: 20190708, end: 20190711
  13. XARELTO [Concomitant]
     Active Substance: RIVAROXABAN
     Indication: Cerebrovascular accident
     Dosage: UNK
     Route: 065
     Dates: start: 20170419, end: 20190708
  14. MIDAZOLAM [Concomitant]
     Active Substance: MIDAZOLAM
     Indication: Spinal stenosis
     Dosage: UNK
     Route: 065
     Dates: start: 20190708
  15. FENTANYL [Concomitant]
     Active Substance: FENTANYL
     Indication: Spinal stenosis
     Dosage: UNK
     Route: 065
     Dates: start: 20190708
  16. LIDOCAINE [Concomitant]
     Active Substance: LIDOCAINE
     Indication: Spinal stenosis
     Dosage: UNK
     Route: 065
     Dates: start: 20190708
  17. PROPOFOL [Concomitant]
     Active Substance: PROPOFOL
     Indication: Spinal stenosis
     Dosage: UNK
     Route: 065
     Dates: start: 20190708
  18. ROCURONIUM [Concomitant]
     Active Substance: ROCURONIUM BROMIDE
     Indication: Spinal stenosis
     Dosage: UNK
     Route: 065
     Dates: start: 20190708
  19. HYDROMORPHONE [Concomitant]
     Active Substance: HYDROMORPHONE
     Indication: Spinal stenosis
     Dosage: UNK
     Route: 065
     Dates: start: 20190708
  20. GLYCOPYRROLATE [Concomitant]
     Active Substance: GLYCOPYRROLATE
     Indication: Spinal stenosis
     Dosage: UNK
     Route: 065
     Dates: start: 20190708
  21. ETOMIDATE [Concomitant]
     Active Substance: ETOMIDATE
     Indication: Spinal stenosis
     Dosage: UNK
     Route: 065
     Dates: start: 20190708
  22. CEFAZOLIN [Concomitant]
     Active Substance: CEFAZOLIN
     Indication: Spinal stenosis
     Dosage: UNK
     Route: 065
     Dates: start: 20190708
  23. DEXAMETHASONE [Concomitant]
     Active Substance: DEXAMETHASONE
     Indication: Spinal stenosis
     Dosage: UNK
     Route: 065
     Dates: start: 20190708
  24. NOREPINEPHRINE [Concomitant]
     Active Substance: NOREPINEPHRINE
     Indication: Spinal stenosis
     Dosage: UNK
     Route: 065
     Dates: start: 20190708
  25. LASIX [Concomitant]
     Active Substance: FUROSEMIDE
     Indication: Spinal stenosis
     Dosage: UNK
     Route: 065
     Dates: start: 20190708
  26. SUGAMMADEX [Concomitant]
     Active Substance: SUGAMMADEX
     Indication: Spinal stenosis
     Dosage: UNK
     Route: 065
     Dates: start: 20190708
  27. LACTATED RINGERS SOLUTION [Concomitant]
     Active Substance: CALCIUM CHLORIDE\POTASSIUM CHLORIDE\SODIUM CHLORIDE\SODIUM LACTATE
     Indication: Spinal stenosis
     Dosage: UNK
     Route: 065
     Dates: start: 20190708, end: 20190709
  28. ALBUMIN HUMAN [Concomitant]
     Active Substance: ALBUMIN HUMAN
     Indication: Spinal stenosis
     Dosage: UNK
     Route: 065
     Dates: start: 20190708
  29. CALCIUM GLUCONATE AND SODIUM CHLORIDE [Concomitant]
     Indication: Hypocalcaemia
     Dosage: UNK
     Route: 065
     Dates: start: 20190709
  30. CHOLECALCIFEROL [Concomitant]
     Active Substance: CHOLECALCIFEROL
     Indication: Hypovitaminosis
     Dosage: UNK
     Route: 065
     Dates: start: 20190709, end: 20190710
  31. DEXTROSE [Concomitant]
     Active Substance: DEXTROSE
     Indication: Dehydration
     Dosage: UNK
     Route: 065
     Dates: start: 20190709
  32. MAGNESIUM SULFATE [Concomitant]
     Active Substance: MAGNESIUM SULFATE
     Indication: Hypomagnesaemia
     Dosage: UNK
     Route: 065
     Dates: start: 20190709
  33. MORPHINE [Concomitant]
     Active Substance: MORPHINE
     Indication: Spinal stenosis
     Dosage: UNK
     Route: 065
     Dates: start: 20190708, end: 20190709
  34. POTASSIUM CHLORIDE [Concomitant]
     Active Substance: POTASSIUM CHLORIDE
     Indication: Hypokalaemia
     Dosage: UNK
     Route: 065
     Dates: start: 20190712
  35. SODIUM CHLORIDE [Concomitant]
     Active Substance: SODIUM CHLORIDE
     Indication: Dehydration
     Dosage: UNK
     Route: 065
     Dates: start: 20190709, end: 20190710
  36. TAMSULOSIN [Concomitant]
     Active Substance: TAMSULOSIN
     Indication: Urinary retention
     Dosage: UNK
     Route: 065
     Dates: start: 20190710

REACTIONS (1)
  - Constipation [Recovered/Resolved]

NARRATIVE: CASE EVENT DATE: 20190714
